FAERS Safety Report 25907792 (Version 1)
Quarter: 2025Q4

REPORT INFORMATION
  Report Type: Report from Study
  Country: US (occurrence: US)
  Receive Date: 20251010
  Receipt Date: 20251010
  Transmission Date: 20260117
  Serious: Yes (Other)
  Sender: ALEXION PHARMACEUTICALS
  Company Number: US-AstraZeneca-CH-00966440A

PATIENT
  Sex: Male

DRUGS (2)
  1. SELUMETINIB [Suspect]
     Active Substance: SELUMETINIB
     Indication: Neurofibromatosis
     Dosage: UNK
  2. SELUMETINIB [Suspect]
     Active Substance: SELUMETINIB
     Indication: Neurofibroma

REACTIONS (5)
  - Neoplasm [Unknown]
  - Skin depigmentation [Unknown]
  - Hair colour changes [Unknown]
  - Back pain [Unknown]
  - Neck pain [Unknown]
